FAERS Safety Report 4693499-7 (Version None)
Quarter: 2005Q2

REPORT INFORMATION
  Report Type: 
  Country: None (occurrence: None)
  Receive Date: 20050617
  Receipt Date: 20050613
  Transmission Date: 20051028
  Serious: Yes (Other)
  Sender: FDA-Public Use
  Company Number: PHFR2005GB02153

PATIENT
  Age: 36 Year
  Sex: Male

DRUGS (4)
  1. TRILEPTAL [Suspect]
     Indication: EPILEPSY
     Dosage: 900 MG, BID
     Dates: start: 20050413
  2. TRILEPTAL [Suspect]
     Dosage: 600 MG, BID
     Route: 048
  3. KEPPRA [Concomitant]
     Indication: EPILEPSY
     Dosage: 250+500MG M+N
     Route: 048
  4. VOLTAROL [Concomitant]
     Indication: PAIN
     Dosage: 50 MG, TID

REACTIONS (3)
  - AMNESIA [None]
  - DEPRESSION [None]
  - SOMNOLENCE [None]
